FAERS Safety Report 5530944-9 (Version None)
Quarter: 2007Q4

REPORT INFORMATION
  Report Type: 
  Country: None (occurrence: None)
  Receive Date: 20071130
  Receipt Date: 20071120
  Transmission Date: 20080405
  Serious: Yes (Other)
  Sender: FDA-Public Use
  Company Number: JP-PFIZER INC-2007092609

PATIENT
  Sex: Female

DRUGS (14)
  1. CELECOX [Suspect]
     Indication: ARTHRALGIA
     Route: 048
  2. AZULFIDINE EN-TABS [Suspect]
     Indication: ARTHRALGIA
     Route: 048
  3. MUCOSTA [Suspect]
     Route: 048
  4. CIMETIDINE [Suspect]
     Indication: ARTHRALGIA
     Route: 048
  5. PREDNISOLONE [Suspect]
     Indication: ARTHRALGIA
     Route: 048
  6. PHENLASE-S [Concomitant]
     Route: 048
  7. ALL OTHER THERAPEUTIC PRODUCTS [Concomitant]
     Route: 048
  8. WARFARIN SODIUM [Concomitant]
     Route: 048
  9. WARFARIN POTASSIUM [Concomitant]
     Route: 048
  10. LASIX [Concomitant]
     Route: 048
  11. DIGOXIN [Concomitant]
     Route: 048
  12. SLOW-K [Concomitant]
     Route: 048
  13. ULCERLMIN [Concomitant]
     Route: 048
  14. PROLMON [Concomitant]
     Route: 048

REACTIONS (1)
  - HAEMOLYTIC ANAEMIA [None]
